FAERS Safety Report 25374561 (Version 3)
Quarter: 2025Q2

REPORT INFORMATION
  Report Type: Spontaneous
  Country: BE (occurrence: BE)
  Receive Date: 20250529
  Receipt Date: 20250623
  Transmission Date: 20250716
  Serious: Yes (Other)
  Sender: PFIZER
  Company Number: BE-PFIZER INC-202500110008

PATIENT
  Sex: Male
  Weight: 67 kg

DRUGS (2)
  1. VYNDAQEL [Suspect]
     Active Substance: TAFAMIDIS MEGLUMINE
     Indication: Cardiac amyloidosis
     Dosage: 61 MG, DAILY
     Route: 048
     Dates: start: 202504, end: 202505
  2. VYNDAQEL [Suspect]
     Active Substance: TAFAMIDIS MEGLUMINE
     Dates: start: 20250618

REACTIONS (2)
  - Deafness [Recovered/Resolved with Sequelae]
  - Ear infection [Recovered/Resolved with Sequelae]

NARRATIVE: CASE EVENT DATE: 20250101
